FAERS Safety Report 7518169-9 (Version None)
Quarter: 2011Q2

REPORT INFORMATION
  Report Type: 
  Country: None (occurrence: None)
  Receive Date: 20110602
  Receipt Date: 20110525
  Transmission Date: 20111010
  Serious: Yes (Hospitalization, Other)
  Sender: FDA-Public Use
  Company Number: US-ABBOTT-11P-163-0728039-00

PATIENT
  Sex: Female
  Weight: 72.64 kg

DRUGS (8)
  1. ESTROGENIC SUBSTANCE [Concomitant]
     Indication: OESTROGEN REPLACEMENT THERAPY
  2. HUMIRA [Suspect]
     Indication: RHEUMATOID ARTHRITIS
     Route: 058
     Dates: start: 20110401
  3. HUMIRA [Suspect]
     Dates: end: 20100601
  4. PREDNISONE [Concomitant]
     Indication: RHEUMATOID ARTHRITIS
     Route: 048
     Dates: start: 20100301
  5. CYMBALTA [Concomitant]
     Indication: PRODUCT USED FOR UNKNOWN INDICATION
  6. LYRICA [Concomitant]
     Indication: PRODUCT USED FOR UNKNOWN INDICATION
  7. SOMA [Concomitant]
     Indication: MUSCLE SPASMS
  8. XANAX [Concomitant]
     Indication: PANIC ATTACK

REACTIONS (17)
  - OXYGEN SATURATION ABNORMAL [None]
  - SKIN ULCER [None]
  - COUGH [None]
  - STAPHYLOCOCCAL INFECTION [None]
  - CARDIAC FAILURE CONGESTIVE [None]
  - INCISION SITE HAEMORRHAGE [None]
  - FATIGUE [None]
  - OEDEMA PERIPHERAL [None]
  - JOINT SWELLING [None]
  - PNEUMOTHORAX [None]
  - PAINFUL RESPIRATION [None]
  - PNEUMONIA [None]
  - SINUSITIS [None]
  - PULMONARY OEDEMA [None]
  - CONTUSION [None]
  - BACK PAIN [None]
  - PLEURAL FIBROSIS [None]
